FAERS Safety Report 5405311-9 (Version None)
Quarter: 2007Q3

REPORT INFORMATION
  Report Type: 
  Country: None (occurrence: None)
  Receive Date: 20070803
  Receipt Date: 20070801
  Transmission Date: 20080115
  Serious: Yes (Life-Threatening)
  Sender: FDA-Public Use
  Company Number: B0481646A

PATIENT
  Age: 58 Year
  Sex: Female

DRUGS (1)
  1. ZINACEF [Suspect]
     Indication: INFECTION
     Dosage: 1.5G PER DAY
     Route: 042
     Dates: start: 20070629, end: 20070630

REACTIONS (10)
  - ASTHENIA [None]
  - CHILLS [None]
  - DYSPNOEA [None]
  - HAEMOPTYSIS [None]
  - HEADACHE [None]
  - HYPERSENSITIVITY [None]
  - PHARMACEUTICAL PRODUCT COMPLAINT [None]
  - PYREXIA [None]
  - THROAT IRRITATION [None]
  - VOMITING [None]
